FAERS Safety Report 7314003-0 (Version None)
Quarter: 2011Q1

REPORT INFORMATION
  Report Type: 
  Country: None (occurrence: None)
  Receive Date: 20110225
  Receipt Date: 20110222
  Transmission Date: 20110831
  Serious: Yes (Death)
  Sender: FDA-Public Use
  Company Number: PHHY2011GR14067

PATIENT
  Sex: Male

DRUGS (7)
  1. ZOMETA [Suspect]
     Dosage: 4MG/5ML, UNK
     Route: 042
     Dates: start: 20090421, end: 20100719
  2. DEXAMETHASONE [Concomitant]
     Indication: CACHEXIA
     Dosage: 2 MG, UNK
     Dates: start: 20100521
  3. PANTOPRAZOLE [Concomitant]
     Dosage: 40 MG, UNK
     Dates: start: 20100521
  4. MELOXICAM [Concomitant]
     Indication: PAIN
     Dosage: 15 MG, UNK
     Dates: start: 20100521
  5. PERPHENAZINE AND AMITRIPTYLINE HCL [Concomitant]
     Indication: AFFECTIVE DISORDER
     Dosage: UNK
  6. FENTANYL [Concomitant]
     Dosage: 62 MG/H PER 72 HOURS
     Dates: start: 20100521
  7. GABAPENTIN [Concomitant]
     Indication: PAIN
     Dosage: 800 MG, UNK
     Dates: start: 20100719

REACTIONS (2)
  - NEOPLASM MALIGNANT [None]
  - MULTI-ORGAN FAILURE [None]
